FAERS Safety Report 4400774-X (Version None)
Quarter: 2004Q3

REPORT INFORMATION
  Report Type: 
  Country: None (occurrence: None)
  Receive Date: 20040907
  Receipt Date: 20030602
  Transmission Date: 20050211
  Serious: No
  Sender: FDA-Public Use
  Company Number: US-BRISTOL-MYERS SQUIBB COMPANY-12291357

PATIENT
  Age: 12 Year
  Sex: Male

DRUGS (1)
  1. COUMADIN [Suspect]
     Indication: MITRAL VALVE REPLACEMENT
     Dosage: CHANGED TO 10-MG TABLETS WHICH WERE DISSOLVED IN 10CC WATER + ALLERGY RESOLVED

REACTIONS (4)
  - DRUG HYPERSENSITIVITY [None]
  - INTERNATIONAL NORMALISED RATIO ABNORMAL [None]
  - MIGRAINE [None]
  - RASH MACULAR [None]
